FAERS Safety Report 25832668 (Version 1)
Quarter: 2025Q3

REPORT INFORMATION
  Report Type: Spontaneous
  Country: EU (occurrence: EU)
  Receive Date: 20250922
  Receipt Date: 20250922
  Transmission Date: 20251021
  Serious: Yes (Other)
  Sender: SANOFI AVENTIS
  Company Number: None

PATIENT
  Age: 44 Year
  Sex: Female

DRUGS (1)
  1. ISONIAZID\RIFAMPIN [Suspect]
     Active Substance: ISONIAZID\RIFAMPIN
     Indication: Tuberculosis
     Dosage: 2 DF, QD
     Route: 048
     Dates: start: 202211, end: 202302

REACTIONS (3)
  - Cognitive disorder [Recovering/Resolving]
  - Hypoaesthesia [Recovering/Resolving]
  - Memory impairment [Recovering/Resolving]

NARRATIVE: CASE EVENT DATE: 20230101
